FAERS Safety Report 18658594 (Version 4)
Quarter: 2021Q3

REPORT INFORMATION
  Report Type: Spontaneous
  Country: GB (occurrence: GB)
  Receive Date: 20201224
  Receipt Date: 20210818
  Transmission Date: 20211014
  Serious: Yes (Other)
  Sender: FDA-Public Use
  Company Number: GB-BIOVITRUM-2020GB7873

PATIENT
  Age: 45 Year
  Sex: Male

DRUGS (17)
  1. FENTANYL TRANSDERMAL SYSTEM [Concomitant]
     Active Substance: FENTANYL
  2. FENTANYL TRANSDERMAL SYSTEM [Concomitant]
     Active Substance: FENTANYL
  3. ORFADIN [Suspect]
     Active Substance: NITISINONE
     Indication: ALKAPTONURIA
     Dates: start: 2012
  4. RELTEBON [Concomitant]
     Active Substance: OXYCODONE HYDROCHLORIDE
  5. MULTI VIT [Concomitant]
     Active Substance: VITAMINS
  6. ADCAL D3 [Concomitant]
     Active Substance: CALCIUM CARBONATE\CHOLECALCIFEROL
  7. OXYCODONE [Concomitant]
     Active Substance: OXYCODONE
  8. COLECALCIFEROL [Concomitant]
     Active Substance: CHOLECALCIFEROL
  9. CALCIUM SUPPLEMENT [Concomitant]
     Active Substance: CALCIUM
  10. CALCIUM CARBONATE. [Concomitant]
     Active Substance: CALCIUM CARBONATE
  11. DICLOFENAC GEL [Concomitant]
     Active Substance: DICLOFENAC
  12. FENTANYL TRANSDERMAL SYSTEM [Concomitant]
     Active Substance: FENTANYL
  13. DULOXETINE. [Concomitant]
     Active Substance: DULOXETINE
  14. ALENDRONIC ACID [Concomitant]
     Active Substance: ALENDRONIC ACID
  15. CALCIUM D3 [Concomitant]
     Active Substance: CALCIUM\CHOLECALCIFEROL
  16. MORPHINE SULPHATE [Concomitant]
     Active Substance: MORPHINE SULFATE
  17. FORCEVAL [Concomitant]
     Active Substance: FOLIC ACID\IRON\MINERALS\VITAMINS

REACTIONS (3)
  - Amino acid level increased [Unknown]
  - Cataract [Unknown]
  - Lenticular opacities [Unknown]

NARRATIVE: CASE EVENT DATE: 2012
